FAERS Safety Report 13372004 (Version 1)
Quarter: 2017Q1

REPORT INFORMATION
  Report Type: Spontaneous
  Country: US (occurrence: US)
  Receive Date: 20170326
  Receipt Date: 20170326
  Transmission Date: 20170429
  Serious: Yes (Other)
  Sender: FDA-Public Use
  Company Number: US-BAXTER-2017BAX012425

PATIENT
  Sex: Male

DRUGS (4)
  1. LACTATED RINGERS [Suspect]
     Active Substance: CALCIUM CHLORIDE\POTASSIUM CHLORIDE\SODIUM CHLORIDE\SODIUM LACTATE
     Indication: PRODUCT USED FOR UNKNOWN INDICATION
     Dosage: STARTED AT 11.18 AM
     Route: 065
  2. CEFTRIAXONE. [Suspect]
     Active Substance: CEFTRIAXONE
     Indication: DIABETIC FOOT
     Dosage: PICC LINE
     Route: 042
  3. VANCOMYCIN INJECTION, USP [Suspect]
     Active Substance: VANCOMYCIN
     Indication: DIABETIC FOOT
     Dosage: PICC LINE
     Route: 042
  4. FLAGYL [Suspect]
     Active Substance: METRONIDAZOLE\METRONIDAZOLE HYDROCHLORIDE
     Indication: DIABETIC FOOT
     Dosage: PICC LINE
     Route: 042

REACTIONS (5)
  - Staphylococcal infection [Unknown]
  - Bacteroides infection [Unknown]
  - Chills [Recovering/Resolving]
  - Escherichia infection [Unknown]
  - Burkholderia cepacia complex sepsis [Recovered/Resolved]
